FAERS Safety Report 25106341 (Version 2)
Quarter: 2025Q2

REPORT INFORMATION
  Report Type: Report from Study
  Country: US (occurrence: US)
  Receive Date: 20250321
  Receipt Date: 20250408
  Transmission Date: 20250717
  Serious: Yes (Death, Hospitalization, Other)
  Sender: AMNEAL
  Company Number: US-AMNEAL PHARMACEUTICALS-2025-AMRX-01017

PATIENT
  Age: 61 Year
  Sex: Female

DRUGS (1)
  1. FYLNETRA [Suspect]
     Active Substance: PEGFILGRASTIM-PBBK
     Indication: Product used for unknown indication
     Route: 058
     Dates: start: 20250207

REACTIONS (2)
  - Death [Fatal]
  - Anaemia [Recovered/Resolved]

NARRATIVE: CASE EVENT DATE: 20250320
